FAERS Safety Report 16974615 (Version 1)
Quarter: 2019Q4

REPORT INFORMATION
  Report Type: Other
  Country: US (occurrence: US)
  Receive Date: 20191030
  Receipt Date: 20191030
  Transmission Date: 20200122
  Serious: Yes (Hospitalization)
  Sender: FDA-Public Use
  Company Number: US-APTAPHARMA INC.-2076184

PATIENT
  Age: 30 Year
  Sex: Female

DRUGS (1)
  1. IBUPROFEN ORAL [Suspect]
     Active Substance: IBUPROFEN
     Indication: PROCEDURAL PAIN
     Route: 065

REACTIONS (1)
  - Gastric perforation [Unknown]
